FAERS Safety Report 15684184 (Version 3)
Quarter: 2019Q4

REPORT INFORMATION
  Report Type: Spontaneous
  Country: US (occurrence: US)
  Receive Date: 20181204
  Receipt Date: 20191031
  Transmission Date: 20200122
  Serious: No
  Sender: FDA-Public Use
  Company Number: US-BIOGEN-2018BI00663778

PATIENT
  Age: 38 Year
  Sex: Female

DRUGS (1)
  1. TYSABRI [Suspect]
     Active Substance: NATALIZUMAB
     Indication: MULTIPLE SCLEROSIS
     Route: 050
     Dates: start: 20170726

REACTIONS (8)
  - Immunoglobulins decreased [Unknown]
  - Decreased immune responsiveness [Unknown]
  - Multiple sclerosis relapse [Unknown]
  - Pain in extremity [Not Recovered/Not Resolved]
  - Abdominal pain [Not Recovered/Not Resolved]
  - Herpes zoster [Unknown]
  - Pain [Unknown]
  - Bronchitis [Unknown]

NARRATIVE: CASE EVENT DATE: 201810
